FAERS Safety Report 6765736-6 (Version None)
Quarter: 2010Q2

REPORT INFORMATION
  Report Type: 
  Country: None (occurrence: None)
  Receive Date: 20100611
  Receipt Date: 20100603
  Transmission Date: 20101027
  Serious: Yes (Hospitalization)
  Sender: FDA-Public Use
  Company Number: CH-JNJFOC-20100601166

PATIENT
  Age: 75 Year
  Sex: Female

DRUGS (11)
  1. TAVANIC [Suspect]
     Indication: BACTERIAL INFECTION
     Route: 048
  2. PARACETAMOL [Suspect]
     Route: 048
  3. PARACETAMOL [Suspect]
     Indication: GASTROINTESTINAL DISORDER
     Route: 048
  4. ZOLPIDEM [Concomitant]
     Route: 065
  5. XANAX [Concomitant]
     Route: 065
  6. PREDNISONE [Concomitant]
     Route: 065
  7. THERAPEUTIC RADIOPHARMACEUTICALS [Concomitant]
     Route: 065
  8. FLUOROURACIL [Concomitant]
     Route: 065
  9. NEXIUM [Concomitant]
     Route: 065
  10. MOTILIUM [Concomitant]
     Route: 065
  11. ATORVASTATIN CALCIUM [Concomitant]
     Route: 065

REACTIONS (6)
  - HEPATIC FAILURE [None]
  - HEPATOCELLULAR INJURY [None]
  - MYELOID LEUKAEMIA [None]
  - PERICARDIAL EFFUSION [None]
  - PERICARDITIS [None]
  - RENAL FAILURE [None]
